FAERS Safety Report 21836941 (Version 1)
Quarter: 2023Q1

REPORT INFORMATION
  Report Type: Spontaneous
  Country: US (occurrence: None)
  Receive Date: 20230107
  Receipt Date: 20230107
  Transmission Date: 20230418
  Serious: No
  Sender: FDA-Public Use
  Company Number: None

PATIENT
  Age: 76 Year
  Sex: Female

DRUGS (8)
  1. PAXLOVID [Suspect]
     Active Substance: NIRMATRELVIR\RITONAVIR
     Indication: COVID-19 treatment
     Dosage: OTHER QUANTITY : 30 CAPSULE(S);?FREQUENCY : TWICE A DAY;?
     Route: 048
  2. TAMOXIFEN [Concomitant]
     Active Substance: TAMOXIFEN
  3. VITAMINS [Concomitant]
     Active Substance: VITAMINS
  4. CALCIUM [Concomitant]
     Active Substance: CALCIUM
  5. Glucosamine/chrondroitin [Concomitant]
  6. VITAMIN C [Concomitant]
     Active Substance: ASCORBIC ACID
  7. BIOTIN [Concomitant]
     Active Substance: BIOTIN
  8. Nutritional yeast [Concomitant]

REACTIONS (9)
  - Malaise [None]
  - Insomnia [None]
  - Feeling abnormal [None]
  - Product label confusion [None]
  - Incorrect dose administered [None]
  - Inappropriate schedule of product administration [None]
  - Product administration error [None]
  - Packaging design issue [None]
  - Product use complaint [None]

NARRATIVE: CASE EVENT DATE: 20230106
